FAERS Safety Report 9565405 (Version 2)
Quarter: 2013Q4

REPORT INFORMATION
  Report Type: Spontaneous
  Country: US (occurrence: US)
  Receive Date: 20130930
  Receipt Date: 20131015
  Transmission Date: 20140711
  Serious: No
  Sender: FDA-Public Use
  Company Number: US-BAYER-2013-117909

PATIENT
  Age: 57 Year
  Sex: Male
  Weight: 86.17 kg

DRUGS (5)
  1. ALEVE CAPLET [Suspect]
     Dosage: 3 DF, QD
     Route: 048
  2. BAYER ASPIRIN REGIMEN ADULT LOW STRENGTH [Concomitant]
     Dosage: 1 DF, QD
     Route: 048
  3. LISINOPRIL [Concomitant]
  4. LIPITOR [Concomitant]
  5. VITAMIN D [Concomitant]

REACTIONS (2)
  - Incorrect dose administered [None]
  - Drug ineffective [None]
